FAERS Safety Report 5535650-2 (Version None)
Quarter: 2007Q4

REPORT INFORMATION
  Report Type: 
  Country: None (occurrence: None)
  Receive Date: 20071204
  Receipt Date: 20071204
  Transmission Date: 20080405
  Serious: Yes (Hospitalization)
  Sender: FDA-Public Use
  Company Number: None

PATIENT
  Sex: Female
  Weight: 94.3 kg

DRUGS (12)
  1. CYTARABINE [Suspect]
     Dosage: 3070 MG
  2. DAUNORUBICIN HCL [Suspect]
     Dosage: 300 MG DOSE GIVEN AS 100 MG IV ON DAY 1,3,5
     Route: 042
  3. ETOPOSIDE [Suspect]
     Dosage: 1000 MG DOSE WAS 200 MG DAILY FOR 5 DAYS
  4. POTASSIUM CHLORIDE [Concomitant]
  5. ACETAMINOPHEN [Concomitant]
  6. AMLODIPINE [Concomitant]
  7. FAMOTIDINE [Concomitant]
  8. FENTANYL TRANSDERMAL SYSTEM [Concomitant]
  9. IMITREX [Concomitant]
  10. LORAZEPAM [Concomitant]
  11. NIFEDIPINE [Concomitant]
  12. PROMETHAZINE [Concomitant]

REACTIONS (26)
  - AGITATION [None]
  - BLOOD CREATININE INCREASED [None]
  - BLOOD PRESSURE SYSTOLIC DECREASED [None]
  - CEREBRAL INFARCTION [None]
  - CONVULSION [None]
  - DISORIENTATION [None]
  - DRUG LEVEL INCREASED [None]
  - GENERAL PHYSICAL HEALTH DETERIORATION [None]
  - HEADACHE [None]
  - HEMIPARESIS [None]
  - HYPERTENSION [None]
  - HYPOTENSION [None]
  - KIDNEY ENLARGEMENT [None]
  - NO THERAPEUTIC RESPONSE [None]
  - PUPILLARY LIGHT REFLEX TESTS ABNORMAL [None]
  - PUPILS UNEQUAL [None]
  - PYREXIA [None]
  - RENAL TUBULAR NECROSIS [None]
  - SEPSIS [None]
  - SEPTIC SHOCK [None]
  - STAPHYLOCOCCAL INFECTION [None]
  - STATUS EPILEPTICUS [None]
  - UNRESPONSIVE TO STIMULI [None]
  - URINE OUTPUT DECREASED [None]
  - VISION BLURRED [None]
  - VISUAL FIELD DEFECT [None]
